FAERS Safety Report 15043063 (Version 1)
Quarter: 2018Q2

REPORT INFORMATION
  Report Type: Report from Study
  Country: None (occurrence: US)
  Receive Date: 20180621
  Receipt Date: 20180621
  Transmission Date: 20180711
  Serious: Yes (Hospitalization)
  Sender: FDA-Public Use
  Company Number: US-ABBVIE-18K-163-2389837-00

PATIENT
  Sex: Male

DRUGS (1)
  1. HUMIRA [Suspect]
     Active Substance: ADALIMUMAB
     Indication: RHEUMATOID ARTHRITIS
     Route: 058
     Dates: start: 201805, end: 201805

REACTIONS (9)
  - Ear injury [Unknown]
  - Speech disorder [Unknown]
  - Brain oedema [Unknown]
  - Blood pressure increased [Unknown]
  - Fall [Unknown]
  - Memory impairment [Recovering/Resolving]
  - Dizziness [Unknown]
  - Arthralgia [Recovering/Resolving]
  - Blood glucose increased [Unknown]

NARRATIVE: CASE EVENT DATE: 2018
